FAERS Safety Report 4598006-5 (Version None)
Quarter: 2005Q2

REPORT INFORMATION
  Report Type: 
  Country: None (occurrence: None)
  Receive Date: 20050207
  Receipt Date: 20031218
  Transmission Date: 20051028
  Serious: Yes (Hospitalization)
  Sender: FDA-Public Use
  Company Number: 700512

PATIENT
  Age: 74 Year
  Sex: Female
  Weight: 56.6996 kg

DRUGS (16)
  1. DIANEAL PD-2 W/ DEXTROSE 1.5% [Suspect]
     Indication: PERITONEAL DIALYSIS
     Dosage: 2 L; INTRAPERITONEAL
     Route: 033
     Dates: start: 20031013
  2. DIANEAL PD-2 W/ DEXTROSE 1.5% [Suspect]
     Dosage: 2 L; INTRAPERITONEAL
     Route: 033
     Dates: start: 20031013
  3. ZETIA [Concomitant]
  4. LEVOTHROID [Concomitant]
  5. ALPRAZOLAN [Concomitant]
  6. MULTIVITAMIN [Concomitant]
  7. ASPIRIN [Concomitant]
  8. LISINOPRIL [Concomitant]
  9. NITROSTAT [Concomitant]
  10. METOPROLOL [Concomitant]
  11. NORVASC [Concomitant]
  12. HUMULOG INSULIN [Concomitant]
  13. CARB/LEVO 50/200 [Concomitant]
  14. CALCITRIOL [Concomitant]
  15. ARACEPT [Concomitant]
  16. QUININE SULFATE [Concomitant]

REACTIONS (1)
  - PERITONITIS [None]
